FAERS Safety Report 9392762 (Version 3)
Quarter: 2013Q3

REPORT INFORMATION
  Report Type: Spontaneous
  Country: IT (occurrence: IT)
  Receive Date: 20130710
  Receipt Date: 20130802
  Transmission Date: 20140515
  Serious: Yes (Hospitalization, Other)
  Sender: FDA-Public Use
  Company Number: IT-MERCK-1307ITA003197

PATIENT
  Age: 57 Year
  Sex: Male
  Weight: 66 kg

DRUGS (8)
  1. PEGINTRON [Suspect]
     Indication: CHRONIC HEPATITIS C
     Dosage: 100 MICROGRAM, QW
     Route: 058
     Dates: start: 20130417, end: 2013
  2. PEGINTRON [Suspect]
     Dosage: 90 MICROGRAM, QW
     Route: 058
     Dates: start: 2013, end: 20130626
  3. REBETOL [Suspect]
     Indication: CHRONIC HEPATITIS C
     Dosage: 1000 MG, DAILY
     Route: 048
     Dates: start: 20130417, end: 20130513
  4. REBETOL [Suspect]
     Dosage: 800 MG, DAILY
     Route: 048
     Dates: start: 20130514, end: 20130703
  5. VICTRELIS [Suspect]
     Indication: CHRONIC HEPATITIS C
     Dosage: 2400 MG, DAILY
     Route: 048
     Dates: start: 20130515, end: 20130703
  6. OMEPRAZOLE [Concomitant]
     Indication: PROPHYLAXIS
     Dosage: UNK
     Route: 048
     Dates: start: 20130624, end: 20130704
  7. ACETAMINOPHEN [Concomitant]
     Indication: PYREXIA
     Dosage: UNK
     Route: 030
     Dates: start: 20130417, end: 20130704
  8. EPOETIN ALFA [Concomitant]
     Dosage: 40000 IU 1 VIAL A WEEK
     Dates: start: 20130606, end: 20130630

REACTIONS (2)
  - Pancytopenia [Recovered/Resolved]
  - Hyperthermia [Recovered/Resolved]
